FAERS Safety Report 7465788-4 (Version None)
Quarter: 2011Q2

REPORT INFORMATION
  Report Type: 
  Country: None (occurrence: None)
  Receive Date: 20110509
  Receipt Date: 20100423
  Transmission Date: 20111010
  Serious: No
  Sender: FDA-Public Use
  Company Number: US-ALEXION-A200900895

PATIENT
  Sex: Male

DRUGS (7)
  1. CYCLOSPORINE [Concomitant]
     Dosage: 200 MG, BID
     Route: 048
  2. SOLIRIS [Suspect]
     Indication: PAROXYSMAL NOCTURNAL HAEMOGLOBINURIA
     Dosage: 600 MG, WEEKLY FOR 4 WEEKS
     Route: 042
     Dates: start: 20090825
  3. PRAVASTATIN [Concomitant]
     Dosage: 20 MG, QD
     Route: 048
  4. FLOMAX [Concomitant]
     Dosage: 4 MG, QD
     Route: 048
  5. SOLIRIS [Suspect]
     Dosage: 900 MG, EVERY 2 WKS
     Dates: start: 20090922
  6. CYCLOSPORINE [Concomitant]
     Dosage: 125 MG, QD
     Route: 048
  7. FOLIC ACID [Concomitant]
     Dosage: 1 MG, QD
     Route: 048

REACTIONS (2)
  - BACK PAIN [None]
  - HAEMOGLOBIN DECREASED [None]
